FAERS Safety Report 5730959-1 (Version None)
Quarter: 2008Q2

REPORT INFORMATION
  Report Type: 
  Country: None (occurrence: None)
  Receive Date: 20080507
  Receipt Date: 20080429
  Transmission Date: 20081010
  Serious: Yes (Death, Hospitalization)
  Sender: FDA-Public Use
  Company Number: US-GENENTECH-253621

PATIENT
  Sex: Male
  Weight: 78.6 kg

DRUGS (2)
  1. BEVACIZUMAB [Suspect]
     Indication: NON-SMALL CELL LUNG CANCER
     Dosage: 1302 MG, Q21D
     Route: 042
     Dates: start: 20071221, end: 20071221
  2. SUNITINIB MALATE [Suspect]
     Indication: NON-SMALL CELL LUNG CANCER
     Dosage: 25 MG, UNK
     Route: 048
     Dates: start: 20071221, end: 20071230

REACTIONS (1)
  - COLLAPSE OF LUNG [None]
